FAERS Safety Report 5064828-X (Version None)
Quarter: 2006Q3

REPORT INFORMATION
  Report Type: 
  Country: None (occurrence: None)
  Receive Date: 20060728
  Receipt Date: 20060719
  Transmission Date: 20061208
  Serious: Yes (Death)
  Sender: FDA-Public Use
  Company Number: US-BRISTOL-MYERS SQUIBB COMPANY-13447230

PATIENT
  Sex: Male

DRUGS (1)
  1. BLENOXANE [Suspect]

REACTIONS (1)
  - DEATH [None]
